FAERS Safety Report 9123902 (Version 4)
Quarter: 2013Q2

REPORT INFORMATION
  Report Type: Report from Study
  Country: IT (occurrence: IT)
  Receive Date: 20130227
  Receipt Date: 20130501
  Transmission Date: 20140414
  Serious: Yes (Life-Threatening, Hospitalization)
  Sender: FDA-Public Use
  Company Number: IT-BRISTOL-MYERS SQUIBB COMPANY-17413865

PATIENT
  Age: 61 Year
  Sex: Male
  Weight: 63 kg

DRUGS (6)
  1. ALD518 [Suspect]
     Indication: STOMATITIS
     Dosage: 14JAN13-14JAN13?04FEB13-04FEB13
     Route: 042
     Dates: start: 20130114, end: 20130204
  2. CISPLATIN [Suspect]
     Indication: HEAD AND NECK CANCER
     Dosage: 168MG,1 IN 3 WKS?15JAN13-15JAN13?4FEB13-4FEB13
     Route: 042
     Dates: start: 20130115, end: 20130204
  3. BLINDED: PLACEBO [Suspect]
     Indication: STOMATITIS
     Route: 042
     Dates: start: 20130114, end: 20130204
  4. LANSOPRAZOLE [Concomitant]
     Indication: PROPHYLAXIS
     Route: 048
     Dates: start: 20130204
  5. FLUCONAZOLE [Concomitant]
     Indication: OROPHARYNGEAL CANDIDIASIS
     Route: 048
     Dates: start: 20130125
  6. FLUCONAZOLE [Concomitant]
     Indication: ORAL CANDIDIASIS
     Route: 048
     Dates: start: 20130125

REACTIONS (1)
  - Pseudomonas infection [Recovered/Resolved]
